FAERS Safety Report 14970015 (Version 4)
Quarter: 2019Q3

REPORT INFORMATION
  Report Type: Report from Study
  Country: DE (occurrence: DE)
  Receive Date: 20180604
  Receipt Date: 20190820
  Transmission Date: 20191004
  Serious: Yes (Hospitalization)
  Sender: FDA-Public Use
  Company Number: DE-PFIZER INC-2018223847

PATIENT
  Age: 83 Year
  Sex: Female

DRUGS (20)
  1. PANTOZOL CONTROL [Concomitant]
     Active Substance: PANTOPRAZOLE SODIUM
  2. METOPROLOL. [Concomitant]
     Active Substance: METOPROLOL
  3. HUMIRA [Suspect]
     Active Substance: ADALIMUMAB
     Indication: RHEUMATOID ARTHRITIS
     Dosage: 40 MG,EVERY 2 WEEKS
     Route: 058
     Dates: start: 20170621, end: 201801
  4. ORENCIA [Suspect]
     Active Substance: ABATACEPT
     Dosage: 125 MG, UNK
     Dates: start: 201305, end: 201607
  5. ATORVASTATIN [Concomitant]
     Active Substance: ATORVASTATIN
  6. PREDNISOLON [PREDNISOLONE] [Concomitant]
     Active Substance: PREDNISOLONE
  7. ORENCIA [Suspect]
     Active Substance: ABATACEPT
     Dosage: UNK
     Dates: start: 201610, end: 201610
  8. ENBREL [Concomitant]
     Active Substance: ETANERCEPT
     Dosage: 50 MG, UNK
     Dates: start: 201607, end: 201610
  9. PRADAXA [Concomitant]
     Active Substance: DABIGATRAN ETEXILATE MESYLATE
  10. DIGITOXIN [Concomitant]
     Active Substance: DIGITOXIN
  11. FOLSAN [Concomitant]
     Active Substance: FOLIC ACID
  12. ENAHEXAL [ENALAPRIL MALEATE] [Concomitant]
  13. METHOTREXATE (METHOTREXATE SODIUM) [Suspect]
     Active Substance: METHOTREXATE SODIUM
     Dosage: 10 MG, 1XWEEKLY
  14. CIRCADIN [Concomitant]
     Active Substance: MELATONIN
  15. METHOTREXATE (METHOTREXATE SODIUM) [Suspect]
     Active Substance: METHOTREXATE SODIUM
     Dosage: 5 MG, UNK
     Route: 065
     Dates: start: 2013
  16. ORENCIA [Suspect]
     Active Substance: ABATACEPT
     Dosage: UNK
     Route: 065
     Dates: start: 201802
  17. HUMALOG [Concomitant]
     Active Substance: INSULIN LISPRO
  18. SPIROBETA [Concomitant]
     Active Substance: SPIRONOLACTONE
  19. ROACTEMRA [Concomitant]
     Active Substance: TOCILIZUMAB
     Dosage: 640 MG, UNK
     Dates: start: 201110, end: 201111
  20. L-THYROXINE [LEVOTHYROXINE] [Concomitant]
     Active Substance: LEVOTHYROXINE

REACTIONS (6)
  - Cardiomyopathy [Not Recovered/Not Resolved]
  - Gouty arthritis [Unknown]
  - Eructation [Unknown]
  - Rheumatoid arthritis [Unknown]
  - Osteoporosis [Unknown]
  - Nausea [Unknown]

NARRATIVE: CASE EVENT DATE: 20170829
